FAERS Safety Report 8960770 (Version 1)
Quarter: 2012Q4

REPORT INFORMATION
  Report Type: 
  Country: CL (occurrence: CL)
  Receive Date: 20121212
  Receipt Date: 20121212
  Transmission Date: 20130627
  Serious: Yes (Other)
  Sender: FDA-Public Use
  Company Number: CL-WATSON-2012-21726

PATIENT
  Age: 57 Year
  Sex: Female

DRUGS (2)
  1. FLUOXETINE HYDROCHLORIDE (UNKNOWN) [Suspect]
     Indication: PRODUCT USED FOR UNKNOWN INDICATION
     Dosage: 20 mg, unknown
     Route: 065
  2. ARIPIPRAZOLE [Suspect]
     Indication: TRICHOTILLOMANIA
     Dosage: 5 mg, unknown
     Route: 065

REACTIONS (3)
  - Drug interaction [Recovered/Resolved]
  - Bradykinesia [Recovered/Resolved]
  - Resting tremor [Recovered/Resolved]
